FAERS Safety Report 9041277 (Version 2)
Quarter: 2013Q1

REPORT INFORMATION
  Report Type: Spontaneous
  Country: US (occurrence: None)
  Receive Date: 20130114
  Receipt Date: 20130131
  Transmission Date: 20140127
  Serious: Yes (Death)
  Sender: FDA-Public Use
  Company Number: DKLU1087754

PATIENT
  Age: 18 Year
  Sex: Male

DRUGS (4)
  1. SABRIL (TABLET) (SABRIL) (VIGABATRIN) (500 MG, TABLET) [Suspect]
     Indication: INFANTILE SPASMS
     Dosage: PRIOR TO //2009 -
  2. ONFI [Concomitant]
  3. FELBATOL(FEBLAMATE) [Concomitant]
  4. BANZEL(RUFINAMIDE) [Concomitant]

REACTIONS (2)
  - Death [None]
  - Pneumonia [None]
